FAERS Safety Report 11329787 (Version 1)
Quarter: 2015Q3

REPORT INFORMATION
  Report Type: Spontaneous
  Country: US (occurrence: None)
  Receive Date: 20150730
  Receipt Date: 20150730
  Transmission Date: 20151125
  Serious: Yes (Other)
  Sender: FDA-Public Use
  Company Number: ADR-2015-01296

PATIENT
  Age: 35 Year
  Sex: Male

DRUGS (12)
  1. FLOMAX [Concomitant]
     Active Substance: TAMSULOSIN HYDROCHLORIDE
  2. VALIUM [Suspect]
     Active Substance: DIAZEPAM
  3. DEPAKOTE [Suspect]
     Active Substance: DIVALPROEX SODIUM
  4. DEXILANT [Suspect]
     Active Substance: DEXLANSOPRAZOLE
     Route: 048
  5. RIZATRIPTAN. [Suspect]
     Active Substance: RIZATRIPTAN
     Route: 048
  6. LISINOPRIL. [Suspect]
     Active Substance: LISINOPRIL
  7. LORTAB [Suspect]
     Active Substance: ACETAMINOPHEN\HYDROCODONE BITARTRATE
  8. METHOCARBAMOL. [Suspect]
     Active Substance: METHOCARBAMOL
  9. TUMS [Suspect]
     Active Substance: CALCIUM CARBONATE
  10. LATANOPROST. [Suspect]
     Active Substance: LATANOPROST
     Dosage: 0.005 % EYE DROPS 1 DROP IN BOTH EYES EVERY MORNING AT BEDTIME
  11. MELOXICAM. [Suspect]
     Active Substance: MELOXICAM
     Dosage: 1 TABLET BY MOUTH
  12. LIORESAL [Suspect]
     Active Substance: BACLOFEN
     Indication: MUSCLE SPASTICITY

REACTIONS (5)
  - Paraesthesia [None]
  - Clonus [None]
  - Disease progression [None]
  - Muscle spasticity [None]
  - Muscle spasms [None]
